FAERS Safety Report 13393363 (Version 10)
Quarter: 2018Q3

REPORT INFORMATION
  Report Type: Spontaneous
  Country: JP (occurrence: JP)
  Receive Date: 20170331
  Receipt Date: 20180906
  Transmission Date: 20181010
  Serious: Yes (Hospitalization)
  Sender: FDA-Public Use
  Company Number: JP-009507513-1703JPN002649J

PATIENT
  Age: 81 Year
  Sex: Female
  Weight: 36 kg

DRUGS (8)
  1. IRBETAN [Concomitant]
     Active Substance: IRBESARTAN
     Dosage: 100 MG, UNK
     Route: 048
  2. ATELEC [Concomitant]
     Active Substance: CILNIDIPINE
     Dosage: 10.0 MG, QD
     Route: 048
  3. LYRICA [Concomitant]
     Active Substance: PREGABALIN
     Dosage: 50 MG, QD
     Route: 048
  4. ALFACALCIDOL [Concomitant]
     Active Substance: ALFACALCIDOL
     Dosage: 0.25 MICROGRAM, UNK
     Route: 048
  5. CONSTAN [Concomitant]
     Active Substance: ALPRAZOLAM
     Dosage: 0.4 MG, QD
     Route: 048
  6. CALONAL [Concomitant]
     Active Substance: ACETAMINOPHEN
     Dosage: 400 MG, QID
     Route: 048
  7. KEYTRUDA [Suspect]
     Active Substance: PEMBROLIZUMAB
     Indication: LUNG ADENOCARCINOMA
     Dosage: 200 MG, Q3W
     Route: 041
     Dates: start: 20170316
  8. RYTHMODAN [Concomitant]
     Active Substance: DISOPYRAMIDE
     Dosage: 100 MG, QD
     Route: 048

REACTIONS (1)
  - Disuse syndrome [Recovered/Resolved]

NARRATIVE: CASE EVENT DATE: 20170325
